FAERS Safety Report 15022604 (Version 1)
Quarter: 2018Q2

REPORT INFORMATION
  Report Type: Report from Study
  Country: ES (occurrence: ES)
  Receive Date: 20180618
  Receipt Date: 20180618
  Transmission Date: 20180711
  Serious: Yes (Hospitalization)
  Sender: FDA-Public Use
  Company Number: ES-TEVA-2018-ES-908904

PATIENT
  Age: 74 Year
  Sex: Female

DRUGS (6)
  1. ENVARSUS XR [Suspect]
     Active Substance: TACROLIMUS
     Indication: RENAL TRANSPLANT
     Dosage: 4 MILLIGRAM DAILY;
     Route: 048
     Dates: start: 20170220
  2. LEDERFOLIN 15 MG COMPRIMIDOS, 10 COMPRIMIDOS [Concomitant]
     Indication: ANAEMIA
     Dosage: 15 MILLIGRAM DAILY;
     Route: 048
     Dates: start: 20170220, end: 20171007
  3. VALGANCICLOVIR (2861A) [Suspect]
     Active Substance: VALGANCICLOVIR
     Indication: OPPORTUNISTIC INFECTION PROPHYLAXIS
     Dosage: 225 MILLIGRAM DAILY;
     Route: 048
     Dates: start: 20170922, end: 20171007
  4. SEPTRIN (SULFAMETHOXAZOLE\TRIMETHOPRIM) [Suspect]
     Active Substance: SULFAMETHOXAZOLE\TRIMETHOPRIM
     Indication: PRODUCT USED FOR UNKNOWN INDICATION
     Route: 048
     Dates: start: 20170220, end: 20171007
  5. PREDNISONA (886A) [Concomitant]
     Active Substance: PREDNISONE
     Indication: RENAL TRANSPLANT
     Dosage: 5 MILLIGRAM DAILY;
     Route: 048
     Dates: start: 20170220
  6. CELLCEPT [Suspect]
     Active Substance: MYCOPHENOLATE MOFETIL\MYCOPHENOLATE MOFETIL HYDROCHLORIDE
     Indication: RENAL TRANSPLANT
     Dosage: 1 GRAM DAILY;
     Route: 048
     Dates: start: 20170220, end: 20171007

REACTIONS (3)
  - Diarrhoea [Recovered/Resolved]
  - Dehydration [Recovered/Resolved]
  - Acute kidney injury [Recovered/Resolved]

NARRATIVE: CASE EVENT DATE: 201707
